FAERS Safety Report 25228476 (Version 1)
Quarter: 2025Q2

REPORT INFORMATION
  Report Type: Spontaneous
  Country: US (occurrence: US)
  Receive Date: 20250423
  Receipt Date: 20250423
  Transmission Date: 20250717
  Serious: Yes (Hospitalization, Other)
  Sender: DR REDDYS
  Company Number: US-DRL-USA-USA/2025/04/005597

PATIENT
  Age: 26 Year
  Sex: Male

DRUGS (3)
  1. LACOSAMIDE [Suspect]
     Active Substance: LACOSAMIDE
     Indication: Generalised tonic-clonic seizure
  2. DIVALPROEX SODIUM [Suspect]
     Active Substance: DIVALPROEX SODIUM
     Indication: Generalised tonic-clonic seizure
     Dosage: EXTENDED RELEASE
  3. MIDAZOLAM [Concomitant]
     Active Substance: MIDAZOLAM
     Indication: Generalised tonic-clonic seizure
     Route: 045

REACTIONS (3)
  - Swollen tongue [Unknown]
  - Treatment noncompliance [Unknown]
  - Drug ineffective [Unknown]
